FAERS Safety Report 8275393-8 (Version None)
Quarter: 2012Q2

REPORT INFORMATION
  Report Type: 
  Country: None (occurrence: None)
  Receive Date: 20120411
  Receipt Date: 20100607
  Transmission Date: 20120825
  Serious: Yes (Hospitalization)
  Sender: FDA-Public Use
  Company Number: JP-MERCK-1005USA02331

PATIENT
  Age: 80 Year
  Sex: Male

DRUGS (2)
  1. AMARYL [Concomitant]
     Route: 065
  2. JANUVIA [Suspect]
     Indication: TYPE 2 DIABETES MELLITUS
     Route: 048
     Dates: start: 20100310

REACTIONS (3)
  - DYSSTASIA [None]
  - MUSCLE SPASMS [None]
  - CHEST DISCOMFORT [None]
